FAERS Safety Report 5342727-3 (Version None)
Quarter: 2007Q2

REPORT INFORMATION
  Report Type: 
  Country: None (occurrence: None)
  Receive Date: 20070601
  Receipt Date: 20070522
  Transmission Date: 20071010
  Serious: Yes (Other)
  Sender: FDA-Public Use
  Company Number: FR-PFIZER INC-2007041379

PATIENT
  Age: 75 Year
  Sex: Male

DRUGS (1)
  1. ZITHROMAX [Suspect]
     Indication: BRONCHITIS
     Dates: start: 20070501, end: 20070501

REACTIONS (2)
  - ARTHRALGIA [None]
  - DERMATITIS EXFOLIATIVE [None]
